FAERS Safety Report 4449169-3 (Version None)
Quarter: 2004Q3

REPORT INFORMATION
  Report Type: 
  Country: None (occurrence: None)
  Receive Date: 20040910
  Receipt Date: 20040826
  Transmission Date: 20050211
  Serious: No
  Sender: FDA-Public Use
  Company Number: 04P-013-0271613-00

PATIENT
  Age: 30 Year
  Sex: Female

DRUGS (3)
  1. DEPAKENE [Suspect]
     Indication: MIGRAINE
     Dosage: 500 MG, 1 IN 1 D, PER ORAL
     Route: 048
     Dates: start: 20040726, end: 20040814
  2. ALMOTRIPTAN MALATE [Suspect]
     Indication: MIGRAINE
     Dosage: 12.5 MG, 1 IN 1 D
     Dates: start: 20040812
  3. ACETAMINOPHEN W/ CODEINE [Suspect]
     Indication: PAIN
     Dates: start: 20040813

REACTIONS (11)
  - ANGIONEUROTIC OEDEMA [None]
  - CONDITION AGGRAVATED [None]
  - DYSPNOEA [None]
  - EYE SWELLING [None]
  - EYELID OEDEMA [None]
  - FEELING ABNORMAL [None]
  - IMPAIRED DRIVING ABILITY [None]
  - MIGRAINE [None]
  - NAUSEA [None]
  - OROPHARYNGEAL SWELLING [None]
  - VISION BLURRED [None]
